FAERS Safety Report 24351286 (Version 1)
Quarter: 2024Q3

REPORT INFORMATION
  Report Type: Report from Study
  Country: AT (occurrence: AT)
  Receive Date: 20240923
  Receipt Date: 20240923
  Transmission Date: 20241016
  Serious: No
  Sender: ROCHE
  Company Number: AT-ROCHE-2726741

PATIENT
  Age: 58 Year
  Sex: Female
  Weight: 44.0 kg

DRUGS (17)
  1. HERCEPTIN [Suspect]
     Active Substance: TRASTUZUMAB
     Indication: HER2 positive breast cancer
     Dosage: MOST RECENT DOSE PRIOR TO THE EVENT: 19/SEP/2019
     Route: 042
     Dates: start: 20170810, end: 20171012
  2. PERJETA [Suspect]
     Active Substance: PERTUZUMAB
     Indication: HER2 positive breast cancer
     Dosage: MOST RECENT DOSE WAS RECEIVED ON 12/OCT/2017
     Route: 042
     Dates: start: 20170810
  3. KADCYLA [Suspect]
     Active Substance: ADO-TRASTUZUMAB EMTANSINE
     Indication: HER2 positive breast cancer
     Dosage: MOST RECENT DOSE WAS RECEIVED ON 24/JUL/2019
     Route: 042
     Dates: start: 20171108
  4. XELODA [Suspect]
     Active Substance: CAPECITABINE
     Indication: HER2 positive breast cancer
     Dosage: MOST RECENT DOSE RECEIVED ON 25/MAR/2020? FREQUENCY TEXT:OTHER
     Route: 048
     Dates: start: 20190919
  5. XGEVA [Suspect]
     Active Substance: DENOSUMAB
     Indication: HER2 positive breast cancer
     Dosage: MOST RECENT DOSE IN JUN/2019
     Route: 058
     Dates: start: 20170516
  6. NAVELBINE [Suspect]
     Active Substance: VINORELBINE TARTRATE
     Indication: HER2 positive breast cancer
     Dosage: MOST RECENT DOSE WAS RECEIVED ON 12/OCT/2017
     Route: 042
     Dates: start: 20170810
  7. ABRAXANE [Suspect]
     Active Substance: PACLITAXEL
     Indication: HER2 positive breast cancer
     Route: 042
     Dates: start: 20200401, end: 20200916
  8. HYDROMORPHONE HYDROCHLORIDE [Concomitant]
     Active Substance: HYDROMORPHONE HYDROCHLORIDE
     Indication: Pain
     Dosage: FREQUENCY TEXT:PRN
     Route: 048
  9. LEVOTHYROXINNATRIUM [Concomitant]
     Route: 048
  10. NOVALGIN (AUSTRIA) [Concomitant]
     Indication: Pain
     Dosage: ONGOING = CHECKED? FREQUENCY TEXT:PRN
     Route: 048
  11. MEFENAMIC ACID [Concomitant]
     Active Substance: MEFENAMIC ACID
     Indication: Pain
     Dosage: FREQUENCY TEXT:PRN
     Route: 048
  12. SODIUM [Concomitant]
     Active Substance: SODIUM
     Indication: Product used for unknown indication
     Dosage: 75 UG, QD
  13. LEVETIRACETAM [Concomitant]
     Active Substance: LEVETIRACETAM
     Indication: Epilepsy
     Route: 048
     Dates: start: 20210615
  14. LEVETIRACETAM [Concomitant]
     Active Substance: LEVETIRACETAM
     Dosage: FREQUENCY TEXT:ONCE
     Route: 042
     Dates: start: 20210709, end: 20210709
  15. LEVETIRACETAM [Concomitant]
     Active Substance: LEVETIRACETAM
     Dates: start: 20210606, end: 20210606
  16. DEXAMETHASONE [Concomitant]
     Active Substance: DEXAMETHASONE
     Route: 048
     Dates: start: 20201217, end: 20210624
  17. DEXAMETHASONE [Concomitant]
     Active Substance: DEXAMETHASONE
     Route: 048
     Dates: start: 20210625, end: 20210731

REACTIONS (2)
  - Arthralgia [Recovered/Resolved]
  - Polyneuropathy [Recovered/Resolved]

NARRATIVE: CASE EVENT DATE: 20200513
